FAERS Safety Report 8791216 (Version 1)
Quarter: 2012Q4

REPORT INFORMATION
  Report Type: Spontaneous
  Country: FR (occurrence: None)
  Receive Date: 20120911
  Receipt Date: 20120911
  Transmission Date: 20130627
  Serious: Yes (Other)
  Sender: FDA-Public Use
  Company Number: DSA_59315_2012

PATIENT
  Age: 91 Year
  Sex: Male

DRUGS (5)
  1. BI-TILDIEM [Suspect]
     Indication: PRODUCT USED FOR UNKNOWN INDICATION
     Dates: start: 20120523
  2. PLAVIX [Concomitant]
  3. PREVISCAN /00789001/ [Concomitant]
  4. ZYPREXA [Concomitant]
  5. IMOVANE [Concomitant]

REACTIONS (5)
  - Hypotension [None]
  - Fall [None]
  - Back pain [None]
  - Musculoskeletal chest pain [None]
  - Head injury [None]
